FAERS Safety Report 5449890-4 (Version None)
Quarter: 2007Q3

REPORT INFORMATION
  Report Type: 
  Country: None (occurrence: None)
  Receive Date: 20070910
  Receipt Date: 20070910
  Transmission Date: 20080115
  Serious: Yes (Hospitalization)
  Sender: FDA-Public Use
  Company Number: None

PATIENT
  Sex: Female
  Weight: 103 kg

DRUGS (10)
  1. METHOTREXATE [Suspect]
     Dosage: 15 MG
     Dates: start: 20070807, end: 20070807
  2. CYTARABINE [Suspect]
     Dosage: 13110 MG
     Dates: end: 20070809
  3. ACYCLOVIR [Concomitant]
  4. COMPAZINE [Concomitant]
  5. DIGOXIN [Concomitant]
  6. DILTAZEM CD [Concomitant]
  7. LEVOTHYROXINE SODIUM [Concomitant]
  8. POTASSIUM CHLORIDE [Concomitant]
  9. PROTONIX [Concomitant]
  10. ZOLOFT [Concomitant]

REACTIONS (9)
  - ARTHRITIS INFECTIVE [None]
  - FALL [None]
  - FEBRILE NEUTROPENIA [None]
  - HYPOREFLEXIA [None]
  - JOINT INJURY [None]
  - MENISCUS LESION [None]
  - NEUROPATHY [None]
  - PARAESTHESIA [None]
  - PERONEAL NERVE PALSY [None]
